FAERS Safety Report 17884843 (Version 1)
Quarter: 2020Q2

REPORT INFORMATION
  Report Type: Spontaneous
  Country: US (occurrence: US)
  Receive Date: 20200611
  Receipt Date: 20200611
  Transmission Date: 20200714
  Serious: Yes (Other)
  Sender: FDA-Public Use
  Company Number: None

PATIENT
  Age: 41 Year
  Sex: Male
  Weight: 82.3 kg

DRUGS (13)
  1. FUROSEMIDE 40MG IV BID [Concomitant]
     Dates: start: 20200607
  2. HYDROXYZINE 25 MG POQ6H PRN [Concomitant]
     Dates: start: 20200608
  3. ALBUTEROL 2 PUFFS QID [Concomitant]
     Dates: start: 20200610
  4. VENLAFAXINE 37.5MG PO DAILY [Concomitant]
     Dates: start: 20200607
  5. TRAZODONE 50 MG PO QPM [Concomitant]
     Dates: start: 20200607
  6. ENOXAPARIN 50 MG SQ Q12H [Concomitant]
     Dates: start: 20200607
  7. THIAMINE 100 MG IV DAILY [Concomitant]
     Dates: start: 20200607
  8. DOXYCYCLINE 100 MG PO BID [Concomitant]
     Dates: start: 20200608
  9. MELATONIN 9 MG PO QPM [Concomitant]
     Dates: start: 20200607
  10. FOLIC ACID 1MG PO DAILY [Concomitant]
     Dates: start: 20200607
  11. REMDESIVIR 100 MG VIALS [Suspect]
     Active Substance: REMDESIVIR
     Indication: COVID-19
     Route: 040
     Dates: start: 20200607
  12. METHYLPREDNISOLONE 40 MG IV BID [Concomitant]
     Dates: start: 20200608
  13. PANTOPRAZOLE 40MG BID [Concomitant]
     Dates: start: 20200607

REACTIONS (7)
  - Vision blurred [None]
  - Dyspnoea [None]
  - Vomiting [None]
  - Blindness [None]
  - Oxygen saturation decreased [None]
  - Pain [None]
  - Nausea [None]

NARRATIVE: CASE EVENT DATE: 20200610
